FAERS Safety Report 5229056-3 (Version None)
Quarter: 2007Q1

REPORT INFORMATION
  Report Type: 
  Country: None (occurrence: None)
  Receive Date: 20061201
  Receipt Date: 20060802
  Transmission Date: 20070707
  Serious: No
  Sender: FDA-Public Use
  Company Number: US200608000676

PATIENT
  Age: 73 Year
  Sex: Male

DRUGS (12)
  1. CYMBALTA [Suspect]
     Indication: PAIN
     Dosage: SEE IMAGE
     Dates: start: 20060701
  2. CYMBALTA [Suspect]
     Indication: PAIN
     Dosage: SEE IMAGE
     Dates: start: 20060101
  3. CYMBALTA [Suspect]
     Indication: PAIN
     Dosage: SEE IMAGE
     Dates: start: 20060701
  4. ASPIRIN [Concomitant]
  5. CLONIDINE [Concomitant]
  6. EZETIMIBE (EZETIMIBE) [Concomitant]
  7. SIMVASTATIN [Concomitant]
  8. OMEPRAZOLE [Concomitant]
  9. PROPRANOLOL HYDROCHLORIDE [Concomitant]
  10. GEMFIBROZIL [Concomitant]
  11. TRAMADOL HCL [Concomitant]
  12. FENTANYL [Concomitant]

REACTIONS (3)
  - CRYING [None]
  - DEPRESSION [None]
  - SELF ESTEEM DECREASED [None]
